FAERS Safety Report 8004909-1 (Version None)
Quarter: 2011Q4

REPORT INFORMATION
  Report Type: 
  Country: None (occurrence: None)
  Receive Date: 20111219
  Receipt Date: 20111205
  Transmission Date: 20120403
  Serious: Yes (Other)
  Sender: FDA-Public Use
  Company Number: 2011SP008759

PATIENT
  Age: 66 Year
  Sex: Male

DRUGS (11)
  1. KEPPRA [Concomitant]
  2. OMEPRAZOLE [Concomitant]
  3. PHENYTOIN [Concomitant]
  4. SEPTRA [Concomitant]
  5. DEXAMETHASONE [Concomitant]
  6. LACTULOSE [Concomitant]
  7. MOVICOLON [Concomitant]
  8. ONDANSETRON [Concomitant]
  9. LAMICTAL [Concomitant]
  10. TEMODAL [Suspect]
     Indication: GLIOBLASTOMA
     Dosage: 150 MG;QD   360 MG;QM;PO
     Route: 048
  11. TEMODAL [Suspect]
     Indication: GLIOBLASTOMA
     Dosage: 150 MG;QD   360 MG;QM;PO
     Route: 048

REACTIONS (3)
  - EPILEPSY [None]
  - DRUG INTERACTION [None]
  - ANTICONVULSANT DRUG LEVEL BELOW THERAPEUTIC [None]
